FAERS Safety Report 10090216 (Version 1)
Quarter: 2014Q2

REPORT INFORMATION
  Report Type: Spontaneous
  Country: US (occurrence: US)
  Receive Date: 20140421
  Receipt Date: 20140421
  Transmission Date: 20141212
  Serious: Yes (Hospitalization)
  Sender: FDA-Public Use
  Company Number: US-GLAXOSMITHKLINE-A1070141A

PATIENT
  Age: 55 Year
  Sex: Female

DRUGS (2)
  1. FLONASE [Suspect]
     Indication: CHRONIC OBSTRUCTIVE PULMONARY DISEASE
     Dosage: 50MCG UNKNOWN
     Route: 045
     Dates: start: 20051011
  2. ADVAIR [Suspect]
     Indication: CHRONIC OBSTRUCTIVE PULMONARY DISEASE
     Route: 065
     Dates: start: 20051011

REACTIONS (2)
  - Lung infection [Unknown]
  - Pneumonia [Unknown]
